FAERS Safety Report 6489892-2 (Version None)
Quarter: 2009Q4

REPORT INFORMATION
  Report Type: 
  Country: None (occurrence: None)
  Receive Date: 20091211
  Receipt Date: 20091005
  Transmission Date: 20100525
  Serious: Yes (Hospitalization, Other)
  Sender: FDA-Public Use
  Company Number: US-JNJFOC-20091002187

PATIENT
  Sex: Male
  Weight: 81.65 kg

DRUGS (4)
  1. DURAGESIC-100 [Suspect]
     Indication: BACK PAIN
     Route: 062
  2. LORCET-HD [Concomitant]
     Indication: PAIN
     Route: 048
  3. SOMA [Concomitant]
     Indication: MUSCLE SPASMS
     Route: 048
  4. TRAZODONE [Concomitant]
     Indication: SLEEP DISORDER
     Dosage: ONE AT NIGHT
     Route: 048

REACTIONS (6)
  - ANXIETY [None]
  - CORONARY ARTERY OCCLUSION [None]
  - FEELING ABNORMAL [None]
  - LOSS OF CONSCIOUSNESS [None]
  - MEDICAL DEVICE PAIN [None]
  - ROAD TRAFFIC ACCIDENT [None]
